FAERS Safety Report 7314716-0 (Version None)
Quarter: 2011Q1

REPORT INFORMATION
  Report Type: 
  Country: None (occurrence: None)
  Receive Date: 20110225
  Receipt Date: 20101230
  Transmission Date: 20110831
  Serious: No
  Sender: FDA-Public Use
  Company Number: US-MYLANLABS-2010S1021022

PATIENT
  Age: 32 Year
  Sex: Female

DRUGS (4)
  1. AMNESTEEM [Suspect]
     Dosage: EVERY OTHER DAY
     Route: 048
     Dates: start: 20100701, end: 20101108
  2. LUPRON [Concomitant]
     Indication: CONTRACEPTION
     Dates: end: 20101031
  3. SEASONIQUE [Concomitant]
     Indication: CONTRACEPTION
     Dates: start: 20101101
  4. AMNESTEEM [Suspect]
     Indication: ACNE
     Dosage: EVERY OTHER DAY
     Route: 048
     Dates: start: 20100701, end: 20101108

REACTIONS (1)
  - BLOOD TRIGLYCERIDES INCREASED [None]
